FAERS Safety Report 5082504-4 (Version None)
Quarter: 2006Q3

REPORT INFORMATION
  Report Type: 
  Country: None (occurrence: None)
  Receive Date: 20060817
  Receipt Date: 20060525
  Transmission Date: 20061208
  Serious: Yes (Hospitalization)
  Sender: FDA-Public Use
  Company Number: US-MERCK-0605USA04770

PATIENT
  Age: 72 Year
  Sex: Female
  Weight: 64 kg

DRUGS (4)
  1. FOSAMAX [Suspect]
     Indication: OSTEOPENIA
     Route: 048
     Dates: start: 20031019
  2. FOSAMAX PLUS D [Suspect]
     Indication: OSTEOPENIA
     Route: 048
     Dates: end: 20060604
  3. FOSAMAX PLUS D [Suspect]
     Route: 048
     Dates: start: 20060625
  4. TUMS [Concomitant]
     Route: 065

REACTIONS (4)
  - COLON ADENOMA [None]
  - FLATULENCE [None]
  - MYOCARDIAL INFARCTION [None]
  - OSTEOPOROSIS [None]
